FAERS Safety Report 5620027-1 (Version None)
Quarter: 2008Q1

REPORT INFORMATION
  Report Type: 
  Country: None (occurrence: None)
  Receive Date: 20080208
  Receipt Date: 20080129
  Transmission Date: 20080703
  Serious: Yes (Life-Threatening, Hospitalization)
  Sender: FDA-Public Use
  Company Number: JP-ELI_LILLY_AND_COMPANY-JP200801006429

PATIENT
  Sex: Male
  Weight: 2.7 kg

DRUGS (5)
  1. OLANZAPINE [Suspect]
     Indication: DEPRESSION
     Dosage: 1.75 MG, DAILY (1/D)
     Route: 064
     Dates: end: 20080117
  2. ZOLOFT [Concomitant]
     Indication: DEPRESSION
     Dosage: 150 MG, 3/D
     Route: 064
     Dates: end: 20080117
  3. WINTERMIN [Concomitant]
     Indication: DEPRESSION
     Dosage: 50 MG, DAILY (1/D)
     Route: 064
     Dates: end: 20080117
  4. PROMETHAZINE [Concomitant]
     Indication: DEPRESSION
     Dosage: 150 MG, DAILY (1/D)
     Route: 064
     Dates: end: 20080117
  5. DIAZEPAM [Concomitant]
     Dosage: 10 MG, DAILY (1/D)
     Route: 064
     Dates: end: 20080116

REACTIONS (5)
  - DRUG EXPOSURE DURING PREGNANCY [None]
  - DRUG WITHDRAWAL SYNDROME NEONATAL [None]
  - NEONATAL DISORDER [None]
  - PREMATURE BABY [None]
  - RESPIRATORY DISORDER NEONATAL [None]
